FAERS Safety Report 8884938 (Version 7)
Quarter: 2015Q2

REPORT INFORMATION
  Report Type: Spontaneous
  Country: US (occurrence: US)
  Receive Date: 20121102
  Receipt Date: 20150519
  Transmission Date: 20150821
  Serious: Yes (Hospitalization)
  Sender: FDA-Public Use
  Company Number: US-PFIZER INC-2012273848

PATIENT
  Age: 78 Year
  Sex: Male

DRUGS (32)
  1. DETROL LA [Suspect]
     Active Substance: TOLTERODINE TARTRATE
     Indication: SLEEP DISORDER
     Dosage: 4 MG, DAILY, EVERY NIGHT
     Route: 048
     Dates: start: 2005
  2. COUMADINE [Concomitant]
     Active Substance: WARFARIN SODIUM
     Dosage: 5 MG, 1X/DAY
     Route: 048
     Dates: start: 20141227
  3. OXYGEN. [Concomitant]
     Active Substance: OXYGEN
     Dosage: 3 L, UNK
     Route: 045
     Dates: start: 2004
  4. FLONASE [Concomitant]
     Active Substance: FLUTICASONE PROPIONATE
     Dosage: 50 ?G, DAILY (50 MCG/ACT NASAL SPRAY, USE 1 SPRAY IN EACH NOSTRIL DAILY)
     Dates: start: 20141224
  5. COMBIVENT RESPIMAT [Concomitant]
     Active Substance: ALBUTEROL SULFATE\IPRATROPIUM BROMIDE
     Dosage: 20-100 MCG/ACT AERS; 4X/DAY (TAKE 1 PUFF BY INHALATION 4 TIMES DAILY)
     Dates: start: 20140423
  6. AMBIEN [Concomitant]
     Active Substance: ZOLPIDEM TARTRATE
     Indication: INSOMNIA
     Dosage: 10 MG, (TAKE 10 MG BY MOUTH NIGHTLY AS NEEDED ) AS NEEDED
     Route: 048
  7. ADVAIR HFA [Concomitant]
     Active Substance: FLUTICASONE PROPIONATE\SALMETEROL XINAFOATE
     Dosage: UNK
  8. LYRICA [Suspect]
     Active Substance: PREGABALIN
     Dosage: 200 MG, 2X/DAY (200MG 1-DAY, 1-NIGHT)
     Route: 048
  9. FLOVENT HFA [Concomitant]
     Active Substance: FLUTICASONE PROPIONATE
     Dosage: 220 MCG/ACT; 2 PUFFS TWICE DAILY
     Dates: start: 20140623
  10. KLOR CON M20 [Concomitant]
     Dosage: 20 MEQ, DAILY
     Route: 048
     Dates: start: 20130823
  11. ZAROXOLYN [Concomitant]
     Active Substance: METOLAZONE
     Dosage: UNK
  12. SYMBICORT [Concomitant]
     Active Substance: BUDESONIDE\FORMOTEROL FUMARATE DIHYDRATE
     Dosage: (160-4.5 MCG/ACT INHALER, TAKE 2 PUFFS BY INHALATION), 2X/DAY
     Dates: start: 20141014
  13. LYRICA [Suspect]
     Active Substance: PREGABALIN
     Indication: LIMB DISCOMFORT
     Dosage: 200 MG, 2X/DAY
     Route: 048
     Dates: start: 2005
  14. LYRICA [Suspect]
     Active Substance: PREGABALIN
     Indication: PAIN IN EXTREMITY
     Dosage: 200 MG, 2X/DAY
     Route: 048
     Dates: start: 20140514
  15. COUMADINE [Concomitant]
     Active Substance: WARFARIN SODIUM
     Indication: ANTICOAGULANT THERAPY
     Dosage: UNK
     Route: 048
     Dates: start: 2005
  16. DUO-NEB [Concomitant]
     Dosage: 0.5-2.5 (3) MG/3ML; 4X/DAY
     Dates: start: 20140717
  17. FLONASE [Concomitant]
     Active Substance: FLUTICASONE PROPIONATE
     Dosage: UNK
     Dates: start: 2009
  18. NIZORAL [Concomitant]
     Active Substance: KETOCONAZOLE
     Dosage: 2 %, DAILY (2% CREAM, APPLY TO SKIN 2 TIMES DAILY. APPLY THIN LAYER TO AFFECTED AREA DAILY)
     Route: 061
     Dates: start: 2014
  19. NORCO [Concomitant]
     Active Substance: ACETAMINOPHEN\HYDROCODONE BITARTRATE
     Indication: PAIN
     Dosage: 1 DF, 4X/DAY, AS NEEDED (.5- 325 MG PER TABLET, SIG: TAKE ONE TABLET, EVERY 6 HOURS AS NEEDED)
     Route: 048
     Dates: start: 20131203
  20. DUO-NEB [Concomitant]
     Indication: CHRONIC OBSTRUCTIVE PULMONARY DISEASE
     Dosage: UNK
     Dates: start: 2005
  21. SPIRIVA [Concomitant]
     Active Substance: TIOTROPIUM BROMIDE MONOHYDRATE
     Dosage: UNK
  22. ECONAZOLE NITRATE. [Concomitant]
     Active Substance: ECONAZOLE NITRATE
     Dosage: 1 %, 2X/DAY, (1% CREAM, APPLY TO AFFECTED AREA 2 TIMES DAILY)
     Dates: start: 20140717
  23. DETROL LA [Suspect]
     Active Substance: TOLTERODINE TARTRATE
     Dosage: 4 MG, 1X/DAY (1-NIGHT)
  24. COMBIVENT RESPIMAT [Concomitant]
     Active Substance: ALBUTEROL SULFATE\IPRATROPIUM BROMIDE
     Dosage: UNK
     Dates: start: 2011
  25. DETROL [Concomitant]
     Active Substance: TOLTERODINE TARTRATE
     Dosage: UNK
     Dates: start: 2005
  26. ZYRTEC [Concomitant]
     Active Substance: CETIRIZINE HYDROCHLORIDE
     Dosage: 10 MG, DAILY
     Route: 048
     Dates: start: 20140319
  27. CELEXA [Concomitant]
     Active Substance: CITALOPRAM HYDROBROMIDE
     Dosage: 20 MG, DAILY
     Route: 048
  28. COUMADINE [Concomitant]
     Active Substance: WARFARIN SODIUM
     Dosage: 2 MG, DAILY
     Route: 048
     Dates: start: 20141020
  29. LASIX [Concomitant]
     Active Substance: FUROSEMIDE
     Indication: DIURETIC THERAPY
     Dosage: 40 MG, DAILY
     Route: 048
     Dates: start: 20140716
  30. PROVENTIL /OLD FORM/ [Concomitant]
     Dosage: (2.5 MG/3ML) 3 ML, 4X/DAY
     Dates: start: 20140711
  31. PRILOSEC [Concomitant]
     Active Substance: OMEPRAZOLE MAGNESIUM
     Indication: GASTROOESOPHAGEAL REFLUX DISEASE
     Dosage: UNK
     Route: 048
     Dates: start: 2009
  32. PRILOSEC [Concomitant]
     Active Substance: OMEPRAZOLE MAGNESIUM
     Dosage: 20 MG, 1X/DAY (TAKE 1 CAP BY MOUTH EVERY MORNING (BEFORE BREAKFAST))
     Route: 048
     Dates: start: 20120711

REACTIONS (2)
  - Limb discomfort [Not Recovered/Not Resolved]
  - Nasopharyngitis [Unknown]
